FAERS Safety Report 9861630 (Version 1)
Quarter: 2014Q1

REPORT INFORMATION
  Report Type: Spontaneous
  Country: GB (occurrence: GB)
  Receive Date: 20140203
  Receipt Date: 20140203
  Transmission Date: 20141002
  Serious: Yes (Hospitalization)
  Sender: FDA-Public Use
  Company Number: GB-BRISTOL-MYERS SQUIBB COMPANY-20095022

PATIENT
  Age: 32 Year
  Sex: Male
  Weight: 103.3 kg

DRUGS (7)
  1. FORXIGA [Suspect]
     Indication: GLYCOSYLATED HAEMOGLOBIN INCREASED
     Route: 048
     Dates: start: 20131121, end: 20131216
  2. METFORMIN [Concomitant]
     Dates: start: 20090210
  3. LISINOPRIL [Concomitant]
  4. SIMVASTATIN [Concomitant]
  5. HUMULIN I [Concomitant]
  6. GLICLAZIDE [Concomitant]
  7. SITAGLIPTIN PHOSPHATE [Concomitant]
     Dates: start: 201211, end: 20131120

REACTIONS (3)
  - Pyelonephritis [Unknown]
  - Blood urine present [Unknown]
  - Urinary tract infection [Unknown]
